FAERS Safety Report 16070273 (Version 5)
Quarter: 2019Q4

REPORT INFORMATION
  Report Type: Spontaneous
  Country: US (occurrence: US)
  Receive Date: 20190314
  Receipt Date: 20191209
  Transmission Date: 20200122
  Serious: Yes (Hospitalization, Other)
  Sender: FDA-Public Use
  Company Number: US-GLAXOSMITHKLINE-US2019GSK045473

PATIENT
  Sex: Female

DRUGS (2)
  1. PREVACID [Suspect]
     Active Substance: LANSOPRAZOLE
     Indication: PRODUCT USED FOR UNKNOWN INDICATION
     Dosage: UNK
     Route: 065
  2. PREVACID [Suspect]
     Active Substance: LANSOPRAZOLE
     Indication: PRODUCT USED FOR UNKNOWN INDICATION
     Dosage: UNK
     Route: 065

REACTIONS (27)
  - Hyperchlorhydria [Unknown]
  - Pyuria [Unknown]
  - Pollakiuria [Unknown]
  - Renal impairment [Unknown]
  - Rebound effect [Unknown]
  - Renal disorder [Unknown]
  - Renal cyst [Unknown]
  - Renal injury [Unknown]
  - Renal atrophy [Unknown]
  - Urinary retention [Unknown]
  - Urinary tract obstruction [Unknown]
  - Dysuria [Unknown]
  - Acute kidney injury [Unknown]
  - Chronic kidney disease [Unknown]
  - Renal failure [Unknown]
  - End stage renal disease [Unknown]
  - Bladder dilatation [Unknown]
  - Nephropathy [Unknown]
  - Hypertensive nephropathy [Unknown]
  - Ureteral disorder [Unknown]
  - Proteinuria [Unknown]
  - Nephritis [Unknown]
  - Renal pain [Unknown]
  - Kidney small [Unknown]
  - Diabetic nephropathy [Unknown]
  - Renal artery arteriosclerosis [Unknown]
  - Haematuria [Unknown]
